FAERS Safety Report 21083686 (Version 1)
Quarter: 2022Q3

REPORT INFORMATION
  Report Type: Spontaneous
  Country: DE (occurrence: DE)
  Receive Date: 20220714
  Receipt Date: 20220714
  Transmission Date: 20221027
  Serious: Yes (Hospitalization, Other)
  Sender: FDA-Public Use
  Company Number: DE-NOVARTISPH-NVSC2022DE159807

PATIENT
  Age: 77 Year
  Sex: Female
  Weight: 72 kg

DRUGS (5)
  1. DEXAMETHASONE [Suspect]
     Active Substance: DEXAMETHASONE
     Indication: Plasma cell myeloma
     Dosage: 16 MG (DATE OF THE LAST DOSAGE BEFORE EVENT ONSET WAS 10 MAY 2022)
     Route: 065
     Dates: start: 20220103
  2. LENALIDOMIDE [Suspect]
     Active Substance: LENALIDOMIDE
     Indication: Plasma cell myeloma
     Dosage: 15 MG (DATE OF THE LAST DOSAGE BEFORE EVENT ONSET WAS 10 MAY 2022)
     Route: 065
     Dates: start: 20220321
  3. DARATUMUMAB [Suspect]
     Active Substance: DARATUMUMAB
     Indication: Plasma cell myeloma
     Dosage: 930 MG
     Route: 042
     Dates: end: 20190711
  4. DARATUMUMAB [Suspect]
     Active Substance: DARATUMUMAB
     Dosage: 930 MG
     Route: 042
     Dates: start: 20190718, end: 20191114
  5. DARATUMUMAB [Suspect]
     Active Substance: DARATUMUMAB
     Dosage: 930 MG
     Route: 042
     Dates: start: 20191128, end: 20211014

REACTIONS (1)
  - Pancreatic carcinoma [Not Recovered/Not Resolved]

NARRATIVE: CASE EVENT DATE: 20220513
